FAERS Safety Report 18299436 (Version 1)
Quarter: 2020Q3

REPORT INFORMATION
  Report Type: Spontaneous
  Country: US (occurrence: US)
  Receive Date: 20200919
  Receipt Date: 20200919
  Transmission Date: 20201103
  Serious: Yes (Hospitalization)
  Sender: FDA-Public Use
  Company Number: None

PATIENT
  Age: 58 Year
  Sex: Female
  Weight: 117 kg

DRUGS (2)
  1. VANCOMYCIN POWDER [Suspect]
     Active Substance: VANCOMYCIN HYDROCHLORIDE
     Dosage: ROUTE: IN IMPREGNATED ANTIBIOTIC CEMENT SPACER
  2. TOBRAMYCIN. [Suspect]
     Active Substance: TOBRAMYCIN

REACTIONS (9)
  - Renal impairment [None]
  - Incision site rash [None]
  - Surgical procedure repeated [None]
  - Drug level increased [None]
  - Candida infection [None]
  - Device issue [None]
  - Antibiotic level [None]
  - Blister [None]
  - Postoperative wound infection [None]

NARRATIVE: CASE EVENT DATE: 20180331
